FAERS Safety Report 14584419 (Version 1)
Quarter: 2018Q1

REPORT INFORMATION
  Report Type: Spontaneous
  Country: KR (occurrence: KR)
  Receive Date: 20180301
  Receipt Date: 20180301
  Transmission Date: 20180509
  Serious: Yes (Other)
  Sender: FDA-Public Use
  Company Number: KR-SUN PHARMACEUTICAL INDUSTRIES LTD-2018RR-163802

PATIENT
  Age: 50 Year
  Sex: Female

DRUGS (4)
  1. RISPERIDONE. [Suspect]
     Active Substance: RISPERIDONE
     Indication: SCHIZOPHRENIA
     Dosage: WITHIN THE RANGE OF 2 TO 6 MG
     Route: 065
  2. GINKGO BILOBA [Suspect]
     Active Substance: GINKGO
     Indication: PRODUCT USED FOR UNKNOWN INDICATION
     Dosage: 80 MG, BID
     Route: 065
  3. CHOLINE ALFOSCERATE [Suspect]
     Active Substance: CHOLINE ALFOSCERATE
     Indication: COGNITIVE DISORDER
     Dosage: UNK
     Route: 065
     Dates: start: 2016
  4. ACETYL L-CARNITINE [Suspect]
     Active Substance: ACETYLCARNITINE
     Indication: COGNITIVE DISORDER
     Dosage: UNK
     Route: 065
     Dates: start: 2016

REACTIONS (7)
  - Anger [Recovered/Resolved]
  - Treatment noncompliance [Unknown]
  - Drug ineffective [Unknown]
  - Agitation [Recovered/Resolved]
  - Cognitive disorder [Recovered/Resolved]
  - Mood altered [Recovered/Resolved]
  - Irritability [Recovered/Resolved]

NARRATIVE: CASE EVENT DATE: 201701
